APPROVED DRUG PRODUCT: CEREBYX
Active Ingredient: FOSPHENYTOIN SODIUM
Strength: EQ 50MG PHENYTOIN NA/ML
Dosage Form/Route: INJECTABLE;INJECTION
Application: N020450 | Product #001 | TE Code: AP
Applicant: PARKE DAVIS DIV WARNER LAMBERT CO
Approved: Aug 5, 1996 | RLD: Yes | RS: Yes | Type: RX